FAERS Safety Report 7565769-6 (Version None)
Quarter: 2011Q2

REPORT INFORMATION
  Report Type: 
  Country: None (occurrence: None)
  Receive Date: 20110623
  Receipt Date: 20110616
  Transmission Date: 20111010
  Serious: Yes (Other)
  Sender: FDA-Public Use
  Company Number: US-PFIZER INC-2011039641

PATIENT
  Sex: Female

DRUGS (8)
  1. CHANTIX [Suspect]
     Indication: SMOKING CESSATION THERAPY
     Dosage: 0.5 MG, UNK
     Dates: start: 20100602, end: 20100605
  2. PREMARIN [Concomitant]
     Indication: HORMONE THERAPY
     Dosage: UNK
     Dates: start: 20080214, end: 20100601
  3. CELEXA [Concomitant]
     Indication: DEPRESSION
     Dosage: UNK
     Dates: start: 20091001, end: 20100801
  4. ALBUTEROL SULFATE AUTOHALER [Concomitant]
     Indication: ASTHMA
     Dosage: UNK
     Dates: start: 20100301, end: 20100601
  5. XANAX [Concomitant]
     Indication: ANXIETY
     Dosage: UNK
     Dates: start: 20091001, end: 20100801
  6. LORTAB [Concomitant]
     Indication: PAIN
     Dosage: UNK
     Dates: start: 20090501, end: 20100701
  7. FLOVENT [Concomitant]
     Indication: ASTHMA
     Dosage: UNK
     Dates: start: 20090901, end: 20100601
  8. ALBUTEROL SULFATE AUTOHALER [Concomitant]
     Dosage: UNK
     Dates: start: 20090901, end: 20100601

REACTIONS (6)
  - INSOMNIA [None]
  - HALLUCINATION [None]
  - ANXIETY [None]
  - DYSKINESIA [None]
  - SUICIDAL IDEATION [None]
  - DEPRESSION [None]
